FAERS Safety Report 5200419-5 (Version None)
Quarter: 2006Q4

REPORT INFORMATION
  Report Type: 
  Country: None (occurrence: None)
  Receive Date: 20061016
  Receipt Date: 20060720
  Transmission Date: 20070319
  Serious: Yes (Hospitalization)
  Sender: FDA-Public Use
  Company Number: 2006SP002758

PATIENT
  Age: 58 Year
  Sex: Female
  Weight: 65.7716 kg

DRUGS (11)
  1. LUNESTA [Suspect]
     Indication: SLEEP DISORDER
     Dosage: SEE IMAGE
     Route: 048
     Dates: start: 20050101, end: 20050101
  2. LUNESTA [Suspect]
     Indication: SLEEP DISORDER
     Dosage: SEE IMAGE
     Route: 048
     Dates: start: 20050101, end: 20050701
  3. LUNESTA [Suspect]
     Indication: SLEEP DISORDER
     Dosage: SEE IMAGE
     Route: 048
     Dates: start: 20050701
  4. TRAZODONE HCL [Suspect]
     Indication: SLEEP DISORDER
     Dosage: 600 MG;HS;ORAL
     Route: 048
     Dates: start: 20050101
  5. EFFEXOR [Concomitant]
  6. NEURONTIN [Concomitant]
  7. KLONOPIN [Concomitant]
  8. ALTACE [Concomitant]
  9. LITHIUM CARBONATE [Concomitant]
  10. SYNTHROID [Concomitant]
  11. RAMELTEON [Concomitant]

REACTIONS (2)
  - DEPRESSION [None]
  - INITIAL INSOMNIA [None]
